FAERS Safety Report 5047114-3 (Version None)
Quarter: 2006Q3

REPORT INFORMATION
  Report Type: 
  Country: None (occurrence: None)
  Receive Date: 20060711
  Receipt Date: 20060503
  Transmission Date: 20061208
  Serious: Yes (Other)
  Sender: FDA-Public Use
  Company Number: US-SP-2006-01038

PATIENT
  Age: 18 Year
  Sex: Male

DRUGS (2)
  1. MENACTRA [Suspect]
     Indication: IMMUNISATION
     Route: 065
     Dates: start: 20060502
  2. TUBERSOL [Suspect]
     Indication: IMMUNISATION
     Route: 065
     Dates: start: 20060502

REACTIONS (2)
  - ROAD TRAFFIC ACCIDENT [None]
  - SYNCOPE [None]
